FAERS Safety Report 6390864-7 (Version None)
Quarter: 2009Q4

REPORT INFORMATION
  Report Type: 
  Country: None (occurrence: None)
  Receive Date: 20091003
  Receipt Date: 20090922
  Transmission Date: 20100525
  Serious: Yes (Life-Threatening, Other)
  Sender: FDA-Public Use
  Company Number: 2009AL006210

PATIENT
  Age: 47 Year
  Sex: Male

DRUGS (3)
  1. IBUPROFEN [Suspect]
     Indication: MUSCLE STRAIN
     Dosage: 400 MG, PO
     Route: 048
     Dates: start: 20090822, end: 20090822
  2. LANSOPRAZOLE [Concomitant]
  3. DICLOFENAC SODIUM [Concomitant]

REACTIONS (4)
  - DYSPNOEA [None]
  - LIP SWELLING [None]
  - PHARYNGEAL OEDEMA [None]
  - RASH [None]
